FAERS Safety Report 16479626 (Version 1)
Quarter: 2019Q2

REPORT INFORMATION
  Report Type: Spontaneous
  Country: US (occurrence: US)
  Receive Date: 20190626
  Receipt Date: 20190626
  Transmission Date: 20190711
  Serious: No
  Sender: FDA-Public Use
  Company Number: US-009507513-1906USA007990

PATIENT
  Age: 59 Year
  Sex: Female

DRUGS (10)
  1. DOMPERIDONE [Concomitant]
     Active Substance: DOMPERIDONE
     Dosage: 10 MILLIGRAM, THREE TIMES DAILY BEFORE MEALS
  2. DOCUSATE SODIUM. [Concomitant]
     Active Substance: DOCUSATE SODIUM
     Dosage: TWICE DAILY
  3. VENLAFAXINE HYDROCHLORIDE. [Concomitant]
     Active Substance: VENLAFAXINE HYDROCHLORIDE
     Dosage: 150 MILLIGRAM, TWICE DAILY
  4. SINEMET [Suspect]
     Active Substance: CARBIDOPA\LEVODOPA
     Dosage: 9.375MG/37.5MG 5 TIMES DAILY.
  5. ENTACAPONE. [Concomitant]
     Active Substance: ENTACAPONE
     Dosage: 100 MILLIGRAM, 8 TIMES DAILY
  6. ENTACAPONE. [Concomitant]
     Active Substance: ENTACAPONE
     Dosage: 200 MILLIGRAM, IN THE MORNING
  7. SINEMET [Suspect]
     Active Substance: CARBIDOPA\LEVODOPA
     Dosage: 12.5MG/50MG IN THE MORNING
  8. SINEMET [Suspect]
     Active Substance: CARBIDOPA\LEVODOPA
     Dosage: 6.25MG/25MG 3 TIMES DAILY
  9. QUETIAPINE FUMARATE. [Concomitant]
     Active Substance: QUETIAPINE FUMARATE
     Dosage: 250 MILLIGRAM, AT BEDTIME
  10. CLONAZEPAM. [Concomitant]
     Active Substance: CLONAZEPAM
     Dosage: 0.5 MILLIGRAM, 4 TIMES DAILY

REACTIONS (1)
  - Incorrect dose administered [Unknown]
